FAERS Safety Report 5303589-3 (Version None)
Quarter: 2007Q2

REPORT INFORMATION
  Report Type: 
  Country: None (occurrence: None)
  Receive Date: 20070420
  Receipt Date: 20070329
  Transmission Date: 20071010
  Serious: Yes (Other)
  Sender: FDA-Public Use
  Company Number: JP-PFIZER INC-2007028526

PATIENT
  Age: 35 Year
  Sex: Female

DRUGS (4)
  1. DETRUSITOL LA [Suspect]
     Dosage: DAILY DOSE:4MG
     Route: 048
  2. TAKEPRON [Concomitant]
  3. TALION [Concomitant]
  4. OTHER RESPIRATORY SYSTEM PRODUCTS [Concomitant]

REACTIONS (2)
  - DRY MOUTH [None]
  - URTICARIA [None]
